FAERS Safety Report 11848904 (Version 1)
Quarter: 2015Q4

REPORT INFORMATION
  Report Type: Spontaneous
  Country: US (occurrence: US)
  Receive Date: 20151218
  Receipt Date: 20151218
  Transmission Date: 20160305
  Serious: No
  Sender: FDA-Public Use
  Company Number: US-009507513-1512USA007542

PATIENT
  Age: 35 Year
  Sex: Male

DRUGS (1)
  1. FOSAMAX [Suspect]
     Active Substance: ALENDRONATE SODIUM
     Indication: OSTEOPOROSIS
     Dosage: 70 MG, QD (ONCE DAILY)
     Route: 048
     Dates: start: 2015

REACTIONS (1)
  - Inappropriate schedule of drug administration [Unknown]
